FAERS Safety Report 4364498-X (Version None)
Quarter: 2004Q2

REPORT INFORMATION
  Report Type: 
  Country: None (occurrence: None)
  Receive Date: 20040513
  Receipt Date: 20040329
  Transmission Date: 20050107
  Serious: Yes (Other)
  Sender: FDA-Public Use
  Company Number: 04-103-0181

PATIENT
  Age: 66 Year
  Sex: Male

DRUGS (19)
  1. ACETYLCYSTEINE [Suspect]
     Indication: CHRONIC OBSTRUCTIVE AIRWAYS DISEASE
     Dosage: 1ML NUBLISED, 1-4X/D
     Dates: start: 20031101, end: 20040326
  2. QVAR INHALER [Concomitant]
  3. FORADIL [Concomitant]
  4. PREDNISONE [Concomitant]
  5. LEVOQUINE [Concomitant]
  6. LIPITOR [Concomitant]
  7. SKELAXIN [Concomitant]
  8. NEURONTIN [Concomitant]
  9. XOPENEX [Concomitant]
  10. THEO-DUR [Concomitant]
  11. ATROVENT NEBULIZATION [Concomitant]
  12. MIACALCIN [Concomitant]
  13. LASIX [Concomitant]
  14. IMDUR [Concomitant]
  15. ULTRAM [Concomitant]
  16. ASPIRIN [Concomitant]
  17. SLOW-K [Concomitant]
  18. CLARINEX [Concomitant]
  19. NITROSTAT PRN [Concomitant]

REACTIONS (3)
  - DRY MOUTH [None]
  - GINGIVAL ATROPHY [None]
  - TOOTH DISORDER [None]
